FAERS Safety Report 5299941-5 (Version None)
Quarter: 2007Q2

REPORT INFORMATION
  Report Type: 
  Country: None (occurrence: None)
  Receive Date: 20070410
  Receipt Date: 20070402
  Transmission Date: 20071010
  Serious: Yes (Other)
  Sender: FDA-Public Use
  Company Number: D0052822A

PATIENT
  Sex: Female

DRUGS (5)
  1. REQUIP [Suspect]
     Indication: PARKINSON'S DISEASE
     Dosage: UNK / UNKNOWN / ORAL
     Route: 048
  2. RASAGILINE MESILATE TABLET (RASAGILINE MESILATE) [Suspect]
     Dosage: 1 MG / UNKNOWN / ORAL
     Route: 048
  3. CONTAC [Suspect]
     Dosage: UNK / UNKNOWN / ORAL
     Route: 048
  4. IBUPROFEN [Suspect]
     Dosage: UNK / UNKNOWN / ORAL
     Route: 048
  5. ACETAMINOPHEN [Suspect]
     Dosage: 500 MG / PER DAY / ORAL
     Route: 048

REACTIONS (1)
  - IMPAIRED DRIVING ABILITY [None]
